FAERS Safety Report 9458406 (Version 3)
Quarter: 2013Q4

REPORT INFORMATION
  Report Type: Spontaneous
  Country: US (occurrence: US)
  Receive Date: 20130814
  Receipt Date: 20131018
  Transmission Date: 20140711
  Serious: No
  Sender: FDA-Public Use
  Company Number: US-PFIZER INC-2013233594

PATIENT
  Sex: Male
  Weight: 59 kg

DRUGS (1)
  1. PREMARIN [Suspect]
     Indication: TRANSGENDER HORMONAL THERAPY
     Dosage: 25 MG, 2X/DAY

REACTIONS (1)
  - Gynaecomastia [Unknown]
